FAERS Safety Report 6212628-7 (Version None)
Quarter: 2009Q2

REPORT INFORMATION
  Report Type: 
  Country: None (occurrence: None)
  Receive Date: 20090603
  Receipt Date: 20090309
  Transmission Date: 20091009
  Serious: No
  Sender: FDA-Public Use
  Company Number: US-BAYER-200915678NA

PATIENT
  Sex: Female

DRUGS (1)
  1. MIRENA [Suspect]
     Indication: CONTRACEPTION
     Dosage: CONTINUOUS
     Route: 015
     Dates: start: 20070601, end: 20090301

REACTIONS (9)
  - AMENORRHOEA [None]
  - ANXIETY [None]
  - BREAST TENDERNESS [None]
  - DEPRESSION [None]
  - FATIGUE [None]
  - HEADACHE [None]
  - HUNGER [None]
  - INSOMNIA [None]
  - NAUSEA [None]
